FAERS Safety Report 6219946-7 (Version None)
Quarter: 2009Q2

REPORT INFORMATION
  Report Type: 
  Country: None (occurrence: None)
  Receive Date: 20090605
  Receipt Date: 20070201
  Transmission Date: 20091009
  Serious: Yes (Death)
  Sender: FDA-Public Use
  Company Number: 2009006365

PATIENT
  Sex: Male

DRUGS (1)
  1. ACTIQ [Suspect]
     Indication: CANCER PAIN
     Dosage: BU
     Route: 002
     Dates: start: 20060929

REACTIONS (1)
  - DEATH [None]
